FAERS Safety Report 9474735 (Version 2)
Quarter: 2013Q3

REPORT INFORMATION
  Report Type: Spontaneous
  Country: US (occurrence: US)
  Receive Date: 20130823
  Receipt Date: 20130918
  Transmission Date: 20140515
  Serious: Yes (Hospitalization)
  Sender: FDA-Public Use
  Company Number: US-US-EMD SERONO, INC.-7231943

PATIENT
  Age: 53 Year
  Sex: Male

DRUGS (1)
  1. REBIF [Suspect]
     Indication: MULTIPLE SCLEROSIS
     Dates: start: 200801

REACTIONS (3)
  - West Nile viral infection [Recovering/Resolving]
  - Functional gastrointestinal disorder [Recovering/Resolving]
  - Rocky mountain spotted fever [Recovering/Resolving]
